FAERS Safety Report 4639643-9 (Version None)
Quarter: 2005Q2

REPORT INFORMATION
  Report Type: 
  Country: None (occurrence: None)
  Receive Date: 20050328
  Receipt Date: 20041220
  Transmission Date: 20051028
  Serious: No
  Sender: FDA-Public Use
  Company Number: USA041286595

PATIENT
  Age: 14 Year
  Sex: Male
  Weight: 82 kg

DRUGS (2)
  1. STRATTERA [Suspect]
     Indication: ATTENTION DEFICIT/HYPERACTIVITY DISORDER
     Dosage: 80 MG/1 DAY
     Dates: start: 20030101
  2. METADATE (METHYLPHENIDATE HYDROCHLORIDE) [Concomitant]

REACTIONS (2)
  - ABDOMINAL PAIN UPPER [None]
  - FEELING ABNORMAL [None]
